FAERS Safety Report 4891214-5 (Version None)
Quarter: 2006Q1

REPORT INFORMATION
  Report Type: 
  Country: None (occurrence: None)
  Receive Date: 20060120
  Receipt Date: 20060110
  Transmission Date: 20060701
  Serious: Yes (Hospitalization)
  Sender: FDA-Public Use
  Company Number: 200610017BYL

PATIENT
  Age: 66 Year
  Sex: Male

DRUGS (4)
  1. BAY43-9006         (SORAFENIB) [Suspect]
     Indication: NON-SMALL CELL LUNG CANCER
     Dosage: 400 MG, BID; ORAL, 400 MG, BID; ORAL
     Route: 048
     Dates: start: 20051223, end: 20060107
  2. BAY43-9006         (SORAFENIB) [Suspect]
     Indication: NON-SMALL CELL LUNG CANCER
     Dosage: 400 MG, BID; ORAL, 400 MG, BID; ORAL
     Route: 048
     Dates: start: 20051129
  3. TAXOL [Concomitant]
  4. PARAPLATIN [Concomitant]

REACTIONS (4)
  - DIZZINESS [None]
  - ELECTROCARDIOGRAM QT CORRECTED INTERVAL PROLONGED [None]
  - FALL [None]
  - VOMITING [None]
